FAERS Safety Report 6796352-8 (Version None)
Quarter: 2010Q2

REPORT INFORMATION
  Report Type: 
  Country: None (occurrence: None)
  Receive Date: 20100622
  Receipt Date: 20100614
  Transmission Date: 20101027
  Serious: Yes (Other)
  Sender: FDA-Public Use
  Company Number: FR-1181993

PATIENT
  Age: 77 Year
  Sex: Male

DRUGS (2)
  1. AZOPT [Suspect]
     Dosage: OPHTHALMIC
     Route: 047
     Dates: start: 20090901, end: 20100301
  2. CARPILO (CARPILO) [Concomitant]

REACTIONS (8)
  - CARDIAC DISORDER [None]
  - HEPATIC FUNCTION ABNORMAL [None]
  - IRRITABILITY [None]
  - OEDEMA PERIPHERAL [None]
  - OROPHARYNGEAL PAIN [None]
  - PAIN IN EXTREMITY [None]
  - PERIPHERAL PARALYSIS [None]
  - VOCAL CORD DISORDER [None]
